FAERS Safety Report 9185719 (Version 1)
Quarter: 2012Q4

REPORT INFORMATION
  Report Type: 
  Country: US (occurrence: US)
  Receive Date: 20121031
  Receipt Date: 20121031
  Transmission Date: 20130627
  Serious: Yes (Hospitalization)
  Sender: FDA-Public Use
  Company Number: US-BAYER-2012-113469

PATIENT
  Age: 37 Year
  Sex: Female

DRUGS (5)
  1. YASMIN [Suspect]
     Indication: ENDOMETRIOSIS
  2. SYNTHROID [Concomitant]
     Indication: HYPOTHYROIDISM
  3. MICARDIS [Concomitant]
     Indication: HYPERTENSION
  4. PROTONIX [Concomitant]
  5. ACIPHEX [Concomitant]

REACTIONS (1)
  - Pulmonary embolism [None]
